FAERS Safety Report 5931882-X (Version None)
Quarter: 2008Q4

REPORT INFORMATION
  Report Type: 
  Country: None (occurrence: None)
  Receive Date: 20081022
  Receipt Date: 20081007
  Transmission Date: 20090506
  Serious: Yes (Other)
  Sender: FDA-Public Use
  Company Number: BI-S-20080024

PATIENT
  Age: 52 Year
  Sex: Female

DRUGS (5)
  1. ESTROGEL [Suspect]
     Indication: HYPERANDROGENISM
     Dosage: TRANSCUTANEOUS
     Dates: start: 19930101
  2. ANDROCUR (CYPROTERONE) [Suspect]
     Indication: HYPERANDROGENISM
     Dosage: ORAL
     Route: 048
     Dates: start: 19930101
  3. DECTANCYL [Concomitant]
  4. MINOXIDIL [Concomitant]
  5. MINOXIDIL [Concomitant]

REACTIONS (7)
  - CALCINOSIS [None]
  - HAEMANGIOMA [None]
  - MASS [None]
  - MENINGIOMA [None]
  - NODULE [None]
  - SINUS DISORDER [None]
  - THERAPEUTIC RESPONSE UNEXPECTED [None]
